FAERS Safety Report 8892821 (Version 1)
Quarter: 2012Q4

REPORT INFORMATION
  Report Type: 
  Country: US (occurrence: US)
  Receive Date: 20121107
  Receipt Date: 20121107
  Transmission Date: 20130627
  Serious: No
  Sender: FDA-Public Use
  Company Number: US-AMGEN-USASP2011059145

PATIENT
  Age: 62 Year
  Sex: Female
  Weight: 74.83 kg

DRUGS (3)
  1. ENBREL [Suspect]
     Indication: PRODUCT USED FOR UNKNOWN INDICATION
     Dosage: 50 mg, qwk
     Route: 058
  2. ATELVIA [Concomitant]
     Dosage: UNK
  3. TYLENOL 8 HOUR [Concomitant]
     Dosage: 650 mg, UNK

REACTIONS (3)
  - Fatigue [Unknown]
  - Dyspnoea [Unknown]
  - Drug ineffective [Unknown]
